FAERS Safety Report 10143272 (Version 1)
Quarter: 2014Q2

REPORT INFORMATION
  Report Type: Report from Study
  Country: US (occurrence: US)
  Receive Date: 20140430
  Receipt Date: 20140430
  Transmission Date: 20141212
  Serious: Yes (Hospitalization, Other)
  Sender: FDA-Public Use
  Company Number: US-IAC KOREA XML-USA-2014-0113315

PATIENT
  Age: 51 Year
  Sex: Female

DRUGS (1)
  1. OXY CR TAB [Suspect]
     Indication: PRODUCT USED FOR UNKNOWN INDICATION
     Dosage: 10 MG, BID
     Route: 048
     Dates: start: 201312

REACTIONS (3)
  - Pneumonia [Recovered/Resolved]
  - Graft versus host disease in lung [Unknown]
  - Aspergillus test positive [Unknown]
